FAERS Safety Report 23920039 (Version 1)
Quarter: 2024Q2

REPORT INFORMATION
  Report Type: Spontaneous
  Country: EG (occurrence: EG)
  Receive Date: 20240530
  Receipt Date: 20240530
  Transmission Date: 20240716
  Serious: Yes (Life-Threatening, Hospitalization, Other)
  Sender: FDA-Public Use
  Company Number: EG-HIKMA PHARMACEUTICALS-EG-H14001-24-04379

PATIENT

DRUGS (5)
  1. CARBOPLATIN [Suspect]
     Active Substance: CARBOPLATIN
     Indication: Ovarian cancer metastatic
     Dosage: 200 MILLIGRAM WEEKLY, EVERY 21 DAYS
     Route: 041
     Dates: start: 20240222
  2. CARBOPLATIN [Suspect]
     Active Substance: CARBOPLATIN
     Dosage: 200 MILLIGRAM WEEKLY, EVERY 21 DAYS
     Route: 041
     Dates: start: 20240430
  3. DEXAMETHASONE [Concomitant]
     Active Substance: DEXAMETHASONE
     Indication: Prophylaxis
     Dosage: UNKNOWN
     Route: 042
  4. PACLITAXEL [Concomitant]
     Active Substance: PACLITAXEL
     Indication: Ovarian cancer metastatic
     Dosage: DOSE 130 MG , REPEATED EVERY WEEK
     Route: 041
     Dates: start: 20240222
  5. PACLITAXEL [Concomitant]
     Active Substance: PACLITAXEL
     Dosage: DOSE 130 MG , REPEATED EVERY WEEK
     Route: 041
     Dates: start: 20240430

REACTIONS (5)
  - Dyspnoea [Unknown]
  - Flushing [Unknown]
  - Bronchospasm [Unknown]
  - Erythema [Unknown]
  - Pain [Unknown]

NARRATIVE: CASE EVENT DATE: 20240430
